FAERS Safety Report 4567877-0 (Version None)
Quarter: 2005Q1

REPORT INFORMATION
  Report Type: 
  Country: None (occurrence: None)
  Receive Date: 20050202
  Receipt Date: 20041208
  Transmission Date: 20050727
  Serious: No
  Sender: FDA-Public Use
  Company Number: US-GLAXOSMITHKLINE-A0536605A

PATIENT
  Age: 53 Year
  Sex: Female

DRUGS (4)
  1. AVANDAMET [Suspect]
     Route: 048
     Dates: start: 20040601
  2. XANAX [Concomitant]
  3. BENECOL [Concomitant]
  4. LASIX [Concomitant]

REACTIONS (3)
  - FEELING COLD [None]
  - HEADACHE [None]
  - NERVOUSNESS [None]
